FAERS Safety Report 4998424-7 (Version None)
Quarter: 2006Q2

REPORT INFORMATION
  Report Type: 
  Country: None (occurrence: None)
  Receive Date: 20060510
  Receipt Date: 20060508
  Transmission Date: 20061013
  Serious: Yes (Other)
  Sender: FDA-Public Use
  Company Number: US-GLAXOSMITHKLINE-A0593519B

PATIENT
  Sex: Female

DRUGS (8)
  1. SUMATRIPTAN SUCCINATE [Suspect]
     Indication: MIGRAINE
     Dosage: 18MG UNKNOWN
     Route: 058
     Dates: start: 20050502, end: 20050504
  2. SUMATRIPTAN SUCCINATE [Suspect]
     Dosage: 100MG UNKNOWN
     Route: 048
     Dates: start: 20050510, end: 20050510
  3. VICODIN [Concomitant]
     Route: 065
  4. AMITRIPTYLINE HCL [Concomitant]
     Route: 065
  5. MOTRIN [Concomitant]
     Route: 065
  6. ALEVE (CAPLET) [Concomitant]
     Route: 048
  7. NIFEDIPINE [Concomitant]
     Route: 065
  8. METHYLDOPA [Concomitant]
     Route: 065

REACTIONS (5)
  - CONGENITAL ANOMALY IN OFFSPRING [None]
  - HYPERTENSION [None]
  - PREMATURE BABY [None]
  - PREMATURE LABOUR [None]
  - PREMATURE SEPARATION OF PLACENTA [None]
